FAERS Safety Report 9056047 (Version 2)
Quarter: 2013Q1

REPORT INFORMATION
  Report Type: Spontaneous
  Country: JP (occurrence: JP)
  Receive Date: 20130205
  Receipt Date: 20130212
  Transmission Date: 20140127
  Serious: Yes (Other)
  Sender: FDA-Public Use
  Company Number: JP-JNJFOC-20130108110

PATIENT
  Sex: 0

DRUGS (2)
  1. ITRIZOLE [Suspect]
     Indication: ASPERGILLOMA
     Dosage: TAPERED DOSE
     Route: 048
  2. ITRIZOLE [Suspect]
     Indication: ASPERGILLOMA
     Route: 048

REACTIONS (4)
  - Hepatic cancer [Unknown]
  - Hepatic cirrhosis [Unknown]
  - Hepatitis [Unknown]
  - Haemoptysis [Unknown]
